FAERS Safety Report 18570220 (Version 1)
Quarter: 2020Q4

REPORT INFORMATION
  Report Type: Spontaneous
  Country: DE (occurrence: DE)
  Receive Date: 20201202
  Receipt Date: 20201202
  Transmission Date: 20210114
  Serious: Yes (Other)
  Sender: FDA-Public Use
  Company Number: DE-PFIZER INC-2020472874

PATIENT

DRUGS (2)
  1. CYTOTEC [Suspect]
     Active Substance: MISOPROSTOL
     Dosage: 300 UG, 1X/DAY (1ST DOSE: 100UG, 2ND DOSE: 100UG, 3RD DOSE: 100UG)
     Route: 064
     Dates: start: 20180803, end: 20180803
  2. CYTOTEC [Suspect]
     Active Substance: MISOPROSTOL
     Indication: LABOUR INDUCTION
     Dosage: 75 UG, 1X/DAY (1ST DOSE: 25UG, 2ND DOSE: 50UG)
     Route: 064
     Dates: start: 20180802, end: 20180802

REACTIONS (2)
  - Neonatal asphyxia [Unknown]
  - Foetal exposure during delivery [Unknown]

NARRATIVE: CASE EVENT DATE: 201808
